FAERS Safety Report 17305098 (Version 1)
Quarter: 2020Q1

REPORT INFORMATION
  Report Type: Spontaneous
  Country: US (occurrence: US)
  Receive Date: 20200123
  Receipt Date: 20200123
  Transmission Date: 20200409
  Serious: Yes (Hospitalization, Other)
  Sender: FDA-Public Use
  Company Number: US-PFIZER INC-2020030309

PATIENT
  Age: 76 Year
  Sex: Male
  Weight: 86.18 kg

DRUGS (1)
  1. NALBUPHINE HYDROCHLORIDE. [Suspect]
     Active Substance: NALBUPHINE HYDROCHLORIDE
     Indication: PAIN
     Dosage: 1.25 ML, AS NEEDED (TAKE 1.25 CC EVERY THREE TO FOUR HOURS AS NEEDED)

REACTIONS (2)
  - Lower limb fracture [Unknown]
  - Drug dependence [Unknown]

NARRATIVE: CASE EVENT DATE: 201905
